FAERS Safety Report 4980426-8 (Version None)
Quarter: 2006Q2

REPORT INFORMATION
  Report Type: 
  Country: None (occurrence: None)
  Receive Date: 20060424
  Receipt Date: 20060324
  Transmission Date: 20061013
  Serious: Yes (Disabling)
  Sender: FDA-Public Use
  Company Number: JP-JPN-A200601042

PATIENT
  Age: 26 Year
  Sex: Male
  Weight: 65 kg

DRUGS (2)
  1. PAXIL [Suspect]
     Indication: OBSESSIVE-COMPULSIVE DISORDER
     Dosage: 20MG TWICE PER DAY
     Route: 048
     Dates: start: 20060113, end: 20060301
  2. ANAFRANIL [Concomitant]
     Route: 065
     Dates: start: 20060301

REACTIONS (1)
  - ERECTILE DYSFUNCTION [None]
